FAERS Safety Report 17728666 (Version 2)
Quarter: 2020Q2

REPORT INFORMATION
  Report Type: Report from Study
  Country: US (occurrence: US)
  Receive Date: 20200430
  Receipt Date: 20200518
  Transmission Date: 20200714
  Serious: Yes (Hospitalization)
  Sender: FDA-Public Use
  Company Number: US-JNJFOC-20200436345

PATIENT
  Age: 24 Year
  Sex: Male
  Weight: 68.1 kg

DRUGS (2)
  1. STELARA [Concomitant]
     Active Substance: USTEKINUMAB
  2. INFLIXIMAB, RECOMBINANT [Suspect]
     Active Substance: INFLIXIMAB
     Indication: INFLAMMATORY BOWEL DISEASE
     Route: 042
     Dates: start: 20090706, end: 20090817

REACTIONS (2)
  - Crohn^s disease [Recovered/Resolved]
  - Colectomy [Recovered/Resolved]

NARRATIVE: CASE EVENT DATE: 20191212
